FAERS Safety Report 22267573 (Version 1)
Quarter: 2023Q2

REPORT INFORMATION
  Report Type: Report from Study
  Country: DE (occurrence: DE)
  Receive Date: 20230430
  Receipt Date: 20230430
  Transmission Date: 20230721
  Serious: Yes (Other)
  Sender: FDA-Public Use
  Company Number: DE-CIPLA (EU) LIMITED-2023DE00340

PATIENT

DRUGS (8)
  1. BORTEZOMIB [Suspect]
     Active Substance: BORTEZOMIB
     Indication: Plasma cell myeloma refractory
     Dosage: 1 MILLIGRAM PER MILLILETER,1 MG/M2 BODY SURFACE AREA (BSA) ON DAYS 1, 4, 8, AND 11 OF 28-DAY CYCLE
     Route: 058
  2. DOXORUBICIN [Suspect]
     Active Substance: DOXORUBICIN
     Indication: Plasma cell myeloma refractory
     Dosage: 10 MILLIGRAM PER MILLILITRE, ONCE A DAY, 10 MG/M2 BSA/DAY, CONTINUOUS INFUSIONS FROM DAY 1-4 OF 28 D
     Route: 065
  3. CISPLATIN [Suspect]
     Active Substance: CISPLATIN
     Indication: Plasma cell myeloma refractory
     Dosage: 10 MILLIGRAM PER MILLILETER, ONCE A DAY, 10 MG/M2 BSA/DAY, CONTINUOUS INFUSIONS FROM DAY 1-4 OF 28-D
     Route: 065
  4. CYCLOPHOSPHAMIDE [Suspect]
     Active Substance: CYCLOPHOSPHAMIDE
     Indication: Plasma cell myeloma refractory
     Dosage: 400 MILLIGRAM PER MILLILITRE, ONCE A DAY, 400 MG/M2 BSA/DAY, CONTINUOUS INFUSIONS FROM DAY 1-4 OF 28
     Route: 065
  5. DARATUMUMAB [Suspect]
     Active Substance: DARATUMUMAB
     Indication: Plasma cell myeloma refractory
     Dosage: UNK
     Route: 065
  6. DEXAMETHASONE [Suspect]
     Active Substance: DEXAMETHASONE
     Indication: Plasma cell myeloma refractory
     Dosage: 40 MILLIGRAM (ON DAYS 1, 2, 3, AND 4) OF 28-DAY CYCLE
     Route: 048
  7. ETOPOSIDE [Suspect]
     Active Substance: ETOPOSIDE
     Indication: Plasma cell myeloma refractory
     Dosage: 40 MILLIGRAM PER MILLILETER, ONCE A DAY, 40 MG/M2 BSA/DAY, CONTINUOUS INFUSIONS FROM DAY 1-4 OF 28-D
     Route: 065
  8. THALIDOMIDE [Suspect]
     Active Substance: THALIDOMIDE
     Indication: Plasma cell myeloma refractory
     Dosage: 200 MILLIGRAM, ONCE A DAY
     Route: 048

REACTIONS (3)
  - Lymphopenia [Unknown]
  - Neutropenia [Unknown]
  - Thrombocytopenia [Unknown]
